FAERS Safety Report 7557862-9 (Version None)
Quarter: 2011Q2

REPORT INFORMATION
  Report Type: 
  Country: None (occurrence: None)
  Receive Date: 20110620
  Receipt Date: 20110606
  Transmission Date: 20111010
  Serious: Yes (Hospitalization)
  Sender: FDA-Public Use
  Company Number: BR-TEVA-259571ISR

PATIENT
  Sex: Female
  Weight: 3 kg

DRUGS (1)
  1. COPAXONE [Suspect]
     Route: 065

REACTIONS (2)
  - LIVE BIRTH [None]
  - WEIGHT GAIN POOR [None]
